FAERS Safety Report 24148966 (Version 3)
Quarter: 2024Q3

REPORT INFORMATION
  Report Type: Report from Study
  Country: US (occurrence: US)
  Receive Date: 20240729
  Receipt Date: 20240819
  Transmission Date: 20241016
  Serious: No
  Sender: ALEXION PHARMACEUTICALS
  Company Number: US-AstraZeneca-CH-00671516A

PATIENT
  Sex: Male
  Weight: 108.84 kg

DRUGS (1)
  1. ULTOMIRIS [Suspect]
     Active Substance: RAVULIZUMAB-CWVZ
     Indication: Product used for unknown indication
     Dosage: UNK
     Route: 065
     Dates: start: 202404

REACTIONS (4)
  - Muscular weakness [Unknown]
  - Neck pain [Unknown]
  - Weight increased [Unknown]
  - Muscle fatigue [Not Recovered/Not Resolved]
